FAERS Safety Report 23553437 (Version 2)
Quarter: 2024Q1

REPORT INFORMATION
  Report Type: Report from Study
  Country: US (occurrence: US)
  Receive Date: 20240222
  Receipt Date: 20240228
  Transmission Date: 20240409
  Serious: Yes (Hospitalization)
  Sender: FDA-Public Use
  Company Number: US-002147023-NVSC2024US005350

PATIENT
  Sex: Female

DRUGS (1)
  1. PIQRAY [Suspect]
     Active Substance: ALPELISIB
     Indication: Product used for unknown indication
     Dosage: 250 MG, QD
     Route: 065

REACTIONS (7)
  - Cellulitis [Unknown]
  - Infection [Unknown]
  - Diarrhoea [Unknown]
  - Rash [Unknown]
  - Blood glucose increased [Unknown]
  - Product administration error [Unknown]
  - Adverse drug reaction [Unknown]
